FAERS Safety Report 7325464-5 (Version None)
Quarter: 2011Q1

REPORT INFORMATION
  Report Type: 
  Country: None (occurrence: None)
  Receive Date: 20110302
  Receipt Date: 20110208
  Transmission Date: 20110831
  Serious: Yes (Other)
  Sender: FDA-Public Use
  Company Number: US-BAYER-201027125NA

PATIENT
  Sex: Female
  Weight: 110.66 kg

DRUGS (8)
  1. YAZ [Suspect]
     Indication: POLYCYSTIC OVARIES
     Dosage: UNK
     Route: 048
  2. YASMIN [Suspect]
     Indication: POLYCYSTIC OVARIES
     Dosage: UNK
     Route: 048
     Dates: start: 20030801, end: 20080601
  3. RHINOCORT [Concomitant]
     Indication: MULTIPLE ALLERGIES
     Dosage: AS DIRECTED
     Dates: start: 20020101
  4. DROSPIRENONE AND ETHINYL ESTRADIOL [Suspect]
     Indication: POLYCYSTIC OVARIES
     Dosage: UNK
     Dates: start: 20080701, end: 20091101
  5. UNCODEABLE ^UNCLASSIFIABLE^ [Concomitant]
     Indication: MULTIPLE ALLERGIES
     Dosage: AS DIRECTED
     Dates: start: 20020101
  6. SPIRONOLACTONE [Concomitant]
     Indication: DIURETIC THERAPY
     Dosage: AS DIRECTED
     Dates: start: 20000101
  7. PAXIL [Concomitant]
     Indication: DEPRESSION
     Dosage: DAILY
     Dates: start: 20020101
  8. LISINOPRIL [Concomitant]
     Indication: HYPERTENSION
     Dosage: AS DIRECTED
     Dates: start: 20020101

REACTIONS (13)
  - VOMITING [None]
  - BILIARY DYSKINESIA [None]
  - FOOD INTOLERANCE [None]
  - ABDOMINAL PAIN [None]
  - GASTRITIS EROSIVE [None]
  - GALLBLADDER CHOLESTEROLOSIS [None]
  - ABDOMINAL PAIN UPPER [None]
  - BARRETT'S OESOPHAGUS [None]
  - CHOLECYSTITIS CHRONIC [None]
  - OESOPHAGEAL SPASM [None]
  - GASTROOESOPHAGEAL REFLUX DISEASE [None]
  - NAUSEA [None]
  - BILIARY COLIC [None]
